FAERS Safety Report 13941270 (Version 3)
Quarter: 2017Q4

REPORT INFORMATION
  Report Type: Report from Study
  Country: AU (occurrence: AU)
  Receive Date: 20170906
  Receipt Date: 20171130
  Transmission Date: 20180320
  Serious: Yes (Hospitalization, Other)
  Sender: FDA-Public Use
  Company Number: AU-REGENERON PHARMACEUTICALS, INC.-2017-21230

PATIENT

DRUGS (2)
  1. EYLEA [Suspect]
     Active Substance: AFLIBERCEPT
     Indication: NEOVASCULAR AGE-RELATED MACULAR DEGENERATION
  2. EYLEA [Suspect]
     Active Substance: AFLIBERCEPT
     Indication: DIABETIC RETINAL OEDEMA
     Dosage: RIGHT EYE EVERY MONTH
     Route: 031
     Dates: start: 20170214

REACTIONS (8)
  - Head injury [Recovered/Resolved]
  - Blood pressure diastolic increased [Recovering/Resolving]
  - Blood glucose increased [Recovering/Resolving]
  - Hospitalisation [Not Recovered/Not Resolved]
  - Fall [Recovered/Resolved]
  - Gastrointestinal polyp [Recovering/Resolving]
  - Hypotension [Recovering/Resolving]
  - Cataract operation [Recovered/Resolved]

NARRATIVE: CASE EVENT DATE: 201707
